FAERS Safety Report 4416436-9 (Version None)
Quarter: 2004Q3

REPORT INFORMATION
  Report Type: 
  Country: None (occurrence: None)
  Receive Date: 20040802
  Receipt Date: 20040721
  Transmission Date: 20050211
  Serious: Yes (Life-Threatening, Hospitalization, Disabling, Other)
  Sender: FDA-Public Use
  Company Number: 2003153826GB

PATIENT
  Age: 63 Year
  Sex: Male
  Weight: 77.4 kg

DRUGS (3)
  1. CABERGOLINE [Suspect]
     Indication: PARKINSON'S DISEASE
     Dosage: 5 MG/DAY, ORAL
     Route: 048
     Dates: start: 20000101
  2. CO-CARELDOPA [Concomitant]
  3. TRIHEXYPHENIDYL HCL [Concomitant]

REACTIONS (17)
  - BLOOD ALBUMIN INCREASED [None]
  - CARDIAC MURMUR [None]
  - DILATATION VENTRICULAR [None]
  - DYSPNOEA EXERTIONAL [None]
  - ELECTROCARDIOGRAM T WAVE INVERSION [None]
  - HEPATOMEGALY [None]
  - LIVER FUNCTION TEST ABNORMAL [None]
  - OEDEMA PERIPHERAL [None]
  - PERICARDITIS CONSTRICTIVE [None]
  - PITTING OEDEMA [None]
  - PLEURAL FIBROSIS [None]
  - PULMONARY EMBOLISM [None]
  - PULMONARY FIBROSIS [None]
  - PULMONARY HYPERTENSION [None]
  - RED BLOOD CELL SEDIMENTATION RATE INCREASED [None]
  - RIGHT VENTRICULAR FAILURE [None]
  - VENTILATION/PERFUSION SCAN ABNORMAL [None]
